FAERS Safety Report 8935178 (Version 1)
Quarter: 2012Q4

REPORT INFORMATION
  Report Type: Report from Study
  Country: IN (occurrence: IN)
  Receive Date: 20121129
  Receipt Date: 20121129
  Transmission Date: 20130627
  Serious: Yes (Hospitalization)
  Sender: FDA-Public Use
  Company Number: IN-PFIZER INC-2012296638

PATIENT
  Age: 57 Year
  Sex: Male

DRUGS (16)
  1. CISPLATIN [Suspect]
     Indication: SQUAMOUS CELL CARCINOMA
     Dosage: 20 mg/m2 and 40 mg/m2
     Route: 042
     Dates: start: 20120911, end: 20121003
  2. P276-00 [Suspect]
     Indication: SQUAMOUS CELL CARCINOMA
     Dosage: 100 mg/m2, 1x/day
     Route: 042
     Dates: start: 20120911, end: 20121006
  3. VITAWIN [Concomitant]
     Indication: VITAMIN SUPPLEMENTATION
     Dosage: UNK
     Route: 048
     Dates: start: 20120929, end: 20121009
  4. PANTOCID D [Concomitant]
     Indication: PROPHYLAXIS
     Dosage: 40 mg, UNK
     Dates: start: 20120927, end: 20120930
  5. PANTOCID D [Concomitant]
     Dosage: 40 mg, UNK
     Route: 048
     Dates: start: 20121003, end: 20121009
  6. MUCAINE [Concomitant]
     Indication: PROPHYLAXIS
     Dosage: 30 ml, UNK
     Route: 048
     Dates: start: 20120927, end: 20121002
  7. MUCAINE [Concomitant]
     Dosage: 30 ml, UNK
     Route: 048
     Dates: start: 20121006, end: 20121009
  8. OROFER XT [Concomitant]
     Indication: IRON SUPPLEMENTATION
     Dosage: UNK
     Route: 048
     Dates: start: 20120927, end: 20121009
  9. VOVERAN - SLOW RELEASE [Concomitant]
     Indication: PROPHYLAXIS
     Dosage: 2 DF, UNK
     Route: 048
     Dates: start: 20120927, end: 20120930
  10. VOVERAN - SLOW RELEASE [Concomitant]
     Dosage: UNK
     Route: 048
     Dates: start: 20121006, end: 20121009
  11. EMSET [Concomitant]
     Indication: VOMITING
     Dosage: 12 mg, UNK
     Route: 048
     Dates: start: 20121003, end: 20121009
  12. GRANISETRON [Concomitant]
     Indication: PROPHYLAXIS
     Dosage: 3 mg, UNK
     Route: 042
     Dates: start: 20121003, end: 20121003
  13. RANTAC [Concomitant]
     Indication: PROPHYLAXIS
     Dosage: 50 mg, UNK
     Route: 042
     Dates: start: 20121003, end: 20121003
  14. KESOL [Concomitant]
     Indication: POTASSIUM SUPPLEMENTATION
     Dosage: 10 ml, UNK
     Route: 042
     Dates: start: 20121003, end: 20121003
  15. MAGNESIUM SULFATE [Concomitant]
     Indication: MAGNESIUM SUPPLEMENTATION
     Dosage: 2 ml, UNK
     Route: 042
     Dates: start: 20121003, end: 20121003
  16. MANNITOL [Concomitant]
     Indication: DIURESIS
     Dosage: 100 ml, UNK
     Route: 042
     Dates: start: 20121003, end: 20121003

REACTIONS (1)
  - Pancytopenia [Recovered/Resolved]
